FAERS Safety Report 5448127-X (Version None)
Quarter: 2007Q3

REPORT INFORMATION
  Report Type: 
  Country: None (occurrence: None)
  Receive Date: 20070803
  Receipt Date: 20070613
  Transmission Date: 20080115
  Serious: No
  Sender: FDA-Public Use
  Company Number: 200711859BWH

PATIENT
  Age: 78 Year
  Sex: Male

DRUGS (7)
  1. NEXAVAR [Suspect]
     Indication: LYMPHADENOPATHY
     Dosage: 400 MG,BID,ORAL
     Route: 048
     Dates: start: 20070501, end: 20070601
  2. NEXAVAR [Suspect]
     Indication: METASTATIC RENAL CELL CARCINOMA
     Dosage: 400 MG,BID,ORAL
     Route: 048
     Dates: start: 20070501, end: 20070601
  3. ASPIRIN [Concomitant]
  4. VITAMIN CAP [Concomitant]
  5. CALCIUM [Concomitant]
  6. DOXYCOZINE [Concomitant]
  7. GEMFIBROZIL [Concomitant]

REACTIONS (1)
  - EPISTAXIS [None]
